FAERS Safety Report 10153550 (Version 1)
Quarter: 2014Q2

REPORT INFORMATION
  Report Type: Spontaneous
  Country: BR (occurrence: BR)
  Receive Date: 20140505
  Receipt Date: 20140505
  Transmission Date: 20141212
  Serious: Yes (Hospitalization, Other)
  Sender: FDA-Public Use
  Company Number: CHNY2014BR001133

PATIENT
  Age: 6 Year
  Sex: Male
  Weight: 15 kg

DRUGS (2)
  1. TRILEPTAL [Suspect]
     Indication: CONVULSION
     Dosage: 3ML IN THE MORNING AND 3.5MG AT NIGHT
     Route: 048
  2. LACTASE [Concomitant]
     Indication: LACTOSE INTOLERANCE
     Dosage: 600 MG, TID
     Route: 048

REACTIONS (6)
  - Pneumonia aspiration [Recovered/Resolved]
  - Choking [Recovered/Resolved]
  - Gastrooesophageal reflux disease [Recovered/Resolved]
  - Dysphagia [Recovered/Resolved]
  - Convulsion [Recovered/Resolved]
  - Blood aluminium increased [Not Recovered/Not Resolved]
